FAERS Safety Report 10005816 (Version 2)
Quarter: 2014Q2

REPORT INFORMATION
  Report Type: Report from Study
  Country: CO (occurrence: CO)
  Receive Date: 20140313
  Receipt Date: 20140410
  Transmission Date: 20141212
  Serious: Yes (Death, Hospitalization)
  Sender: FDA-Public Use
  Company Number: CO-ROCHE-1363135

PATIENT
  Sex: Female
  Weight: 48 kg

DRUGS (3)
  1. RANIBIZUMAB [Suspect]
     Indication: MACULAR DEGENERATION
     Route: 050
     Dates: start: 2012
  2. LOSARTAN [Concomitant]
  3. METFORMIN [Concomitant]
     Route: 065

REACTIONS (3)
  - Lung neoplasm malignant [Fatal]
  - Metastases to heart [Fatal]
  - Metastasis [Unknown]
